FAERS Safety Report 6019806-0 (Version None)
Quarter: 2008Q4

REPORT INFORMATION
  Report Type: 
  Country: None (occurrence: None)
  Receive Date: 20081224
  Receipt Date: 20081217
  Transmission Date: 20090506
  Serious: Yes (Hospitalization, Other)
  Sender: FDA-Public Use
  Company Number: ES-ROXANE LABORATORIES, INC.-2008-RO-00451RO

PATIENT
  Age: 24 Year
  Sex: Female

DRUGS (1)
  1. ZALEPLON [Suspect]
     Route: 048

REACTIONS (13)
  - CHROMATURIA [None]
  - CONFUSIONAL STATE [None]
  - HALLUCINATION, VISUAL [None]
  - HYPOTENSION [None]
  - LIP DISCOLOURATION [None]
  - MENTAL STATUS CHANGES [None]
  - MYOCLONUS [None]
  - OVERDOSE [None]
  - PALLOR [None]
  - RESTLESSNESS [None]
  - SINUS TACHYCARDIA [None]
  - SOMNOLENCE [None]
  - VOMITING [None]
